FAERS Safety Report 25153785 (Version 1)
Quarter: 2025Q2

REPORT INFORMATION
  Report Type: Spontaneous
  Country: IT (occurrence: IT)
  Receive Date: 20250403
  Receipt Date: 20250403
  Transmission Date: 20250716
  Serious: Yes (Other)
  Sender: GALDERMA
  Company Number: IT-MLMSERVICE-20250320-PI452558-00186-1

PATIENT

DRUGS (1)
  1. IVERMECTIN [Suspect]
     Active Substance: IVERMECTIN
     Indication: Rosacea
     Route: 061

REACTIONS (3)
  - Hepatocellular injury [Unknown]
  - Hepatic cytolysis [Unknown]
  - Toxicity to various agents [Unknown]
